FAERS Safety Report 9310820 (Version 1)
Quarter: 2013Q2

REPORT INFORMATION
  Report Type: Spontaneous
  Country: US (occurrence: None)
  Receive Date: 20130523
  Receipt Date: 20130523
  Transmission Date: 20140414
  Serious: Yes (Death)
  Sender: FDA-Public Use
  Company Number: None

PATIENT
  Age: 3 Year
  Sex: Female
  Weight: 12.1 kg

DRUGS (2)
  1. CARBOPLATIN [Suspect]
  2. THIOTEPA [Suspect]

REACTIONS (7)
  - Pyrexia [None]
  - Tachycardia [None]
  - Hypotension [None]
  - Radiation necrosis [None]
  - Hemiplegia [None]
  - Aphasia [None]
  - VIIth nerve paralysis [None]
